FAERS Safety Report 5202970-0 (Version None)
Quarter: 2006Q4

REPORT INFORMATION
  Report Type: 
  Country: None (occurrence: None)
  Receive Date: 20061016
  Receipt Date: 20060912
  Transmission Date: 20070319
  Serious: No
  Sender: FDA-Public Use
  Company Number: 2006SP003256

PATIENT
  Age: 80 Year
  Sex: Male
  Weight: 88.4514 kg

DRUGS (8)
  1. LUNESTA [Suspect]
     Indication: INSOMNIA
     Dosage: 2 MG; HS; ORAL
     Route: 048
     Dates: start: 20060908
  2. ADVIL [Concomitant]
  3. IMDUR [Concomitant]
  4. PRILOSEC [Concomitant]
  5. ATORVASTATIN CALCIUM [Concomitant]
  6. AMLODIPINE [Concomitant]
  7. COZAAR [Concomitant]
  8. WARFARIN SODIUM [Concomitant]

REACTIONS (2)
  - INSOMNIA [None]
  - PROTHROMBIN TIME PROLONGED [None]
